FAERS Safety Report 23545833 (Version 1)
Quarter: 2024Q1

REPORT INFORMATION
  Report Type: Spontaneous
  Country: US (occurrence: None)
  Receive Date: 20240219
  Receipt Date: 20240219
  Transmission Date: 20240409
  Serious: No
  Sender: FDA-Public Use
  Company Number: None

PATIENT
  Age: 78 Year
  Sex: Female

DRUGS (3)
  1. RINVOQ [Suspect]
     Active Substance: UPADACITINIB
     Indication: Musculoskeletal disorder
     Dosage: FREQUENCY : DAILY;?
     Route: 048
     Dates: start: 202307
  2. RINVOQ [Suspect]
     Active Substance: UPADACITINIB
     Indication: Back pain
  3. RINVOQ [Suspect]
     Active Substance: UPADACITINIB
     Indication: Post procedural complication

REACTIONS (1)
  - Cardiac failure [None]
